FAERS Safety Report 13078185 (Version 1)
Quarter: 2017Q1

REPORT INFORMATION
  Report Type: Spontaneous
  Country: IN (occurrence: IN)
  Receive Date: 20170102
  Receipt Date: 20170102
  Transmission Date: 20170428
  Serious: Yes (Hospitalization, Other)
  Sender: FDA-Public Use
  Company Number: IN-GLENMARK PHARMACEUTICALS LIMITED-2016GMK025639

PATIENT
  Age: 13 Year
  Sex: Female

DRUGS (1)
  1. LEVOFLOXACIN. [Suspect]
     Active Substance: LEVOFLOXACIN
     Indication: RESPIRATORY TRACT INFECTION
     Dosage: 500 MG, QD
     Route: 048

REACTIONS (4)
  - Neurotoxicity [Recovered/Resolved]
  - Delirium [Recovered/Resolved]
  - Psychotic disorder [Recovered/Resolved]
  - Product use issue [Unknown]
